FAERS Safety Report 7751479-9 (Version None)
Quarter: 2011Q3

REPORT INFORMATION
  Report Type: 
  Country: None (occurrence: None)
  Receive Date: 20110914
  Receipt Date: 20110906
  Transmission Date: 20111222
  Serious: Yes (Death, Hospitalization)
  Sender: FDA-Public Use
  Company Number: PHHY2011GT79359

PATIENT
  Age: 72 Year
  Sex: Female

DRUGS (1)
  1. DIOVAN [Suspect]
     Indication: HYPERTENSION
     Dosage: 80 MG, UNK

REACTIONS (3)
  - HYDROCEPHALUS [None]
  - DEATH [None]
  - CEREBROVASCULAR ACCIDENT [None]
